FAERS Safety Report 16734578 (Version 1)
Quarter: 2019Q3

REPORT INFORMATION
  Report Type: Spontaneous
  Country: JP (occurrence: JP)
  Receive Date: 20190823
  Receipt Date: 20190823
  Transmission Date: 20191005
  Serious: Yes (Hospitalization, Other)
  Sender: FDA-Public Use
  Company Number: PHHY2019JP193676

PATIENT
  Age: 15 Month
  Sex: Male

DRUGS (4)
  1. FUROSEMIDE. [Suspect]
     Active Substance: FUROSEMIDE
     Indication: AORTIC VALVE STENOSIS
  2. SPIRONOLACTONE. [Suspect]
     Active Substance: SPIRONOLACTONE
     Indication: AORTIC VALVE STENOSIS
  3. FUROSEMIDE. [Suspect]
     Active Substance: FUROSEMIDE
     Indication: CARDIAC FAILURE CHRONIC
     Dosage: UNK
     Route: 065
  4. SPIRONOLACTONE. [Suspect]
     Active Substance: SPIRONOLACTONE
     Indication: CARDIAC FAILURE CHRONIC
     Dosage: UNK
     Route: 065

REACTIONS (8)
  - Dehydration [Unknown]
  - Calculus urinary [Unknown]
  - Metabolic acidosis [Unknown]
  - Prerenal failure [Recovering/Resolving]
  - Anuria [Unknown]
  - Postrenal failure [Recovering/Resolving]
  - Hydronephrosis [Recovered/Resolved]
  - Hyperuricaemia [Unknown]
